FAERS Safety Report 7499620-X (Version None)
Quarter: 2011Q2

REPORT INFORMATION
  Report Type: 
  Country: None (occurrence: None)
  Receive Date: 20110524
  Receipt Date: 20110513
  Transmission Date: 20111010
  Serious: Yes (Hospitalization, Other)
  Sender: FDA-Public Use
  Company Number: US-JNJFOC-20110507412

PATIENT
  Sex: Female

DRUGS (4)
  1. TOPAMAX [Suspect]
     Dosage: 3X100 MG
     Route: 048
     Dates: start: 20040101, end: 20110201
  2. TOPAMAX [Suspect]
     Dosage: 2X100 MG
     Route: 048
     Dates: start: 20110201
  3. TOPAMAX [Suspect]
     Indication: CONVULSION
     Dosage: 3X50 MG
     Route: 048
     Dates: start: 20110101
  4. DILANTIN [Concomitant]
     Indication: CONVULSION
     Route: 048
     Dates: start: 20030101

REACTIONS (7)
  - GASTROOESOPHAGEAL REFLUX DISEASE [None]
  - WEIGHT ABNORMAL [None]
  - HYPERTENSION [None]
  - WEIGHT DECREASED [None]
  - CATARACT [None]
  - MULTIPLE ALLERGIES [None]
  - FLUID RETENTION [None]
